FAERS Safety Report 14596247 (Version 1)
Quarter: 2018Q1

REPORT INFORMATION
  Report Type: Spontaneous
  Country: DE (occurrence: DE)
  Receive Date: 20180303
  Receipt Date: 20180303
  Transmission Date: 20180509
  Serious: Yes (Other)
  Sender: FDA-Public Use
  Company Number: DE-AUROBINDO-AUR-APL-2017-40125

PATIENT
  Age: 30 Year
  Sex: Female
  Weight: 55 kg

DRUGS (3)
  1. ESCITALOPRAM [Suspect]
     Active Substance: ESCITALOPRAM OXALATE
     Dosage: 7.5MGDAILY
     Route: 065
     Dates: start: 20170919
  2. ESCITALOPRAM [Suspect]
     Active Substance: ESCITALOPRAM OXALATE
     Dosage: 20MGDAILY
     Route: 048
     Dates: start: 20170627
  3. ESCITALOPRAM [Suspect]
     Active Substance: ESCITALOPRAM OXALATE
     Indication: DEPRESSION
     Dosage: 15 MG, ONCE A DAY
     Route: 048
     Dates: start: 20170627

REACTIONS (14)
  - Wound [Recovering/Resolving]
  - Galactorrhoea [Not Recovered/Not Resolved]
  - Sexual dysfunction [Recovering/Resolving]
  - Dizziness [Recovered/Resolved]
  - Suicidal ideation [Recovering/Resolving]
  - Headache [Not Recovered/Not Resolved]
  - Decreased appetite [Not Recovered/Not Resolved]
  - Orgasm abnormal [Recovering/Resolving]
  - Tremor [Not Recovered/Not Resolved]
  - Asthenia [Not Recovered/Not Resolved]
  - Fatigue [Unknown]
  - Abdominal pain upper [Not Recovered/Not Resolved]
  - Nightmare [Recovering/Resolving]
  - Sleep disorder [Recovered/Resolved]

NARRATIVE: CASE EVENT DATE: 20170627
